FAERS Safety Report 17254070 (Version 2)
Quarter: 2020Q2

REPORT INFORMATION
  Report Type: Spontaneous
  Country: US (occurrence: US)
  Receive Date: 20200109
  Receipt Date: 20200408
  Transmission Date: 20200713
  Serious: No
  Sender: FDA-Public Use
  Company Number: US-OPTINOSE US, INC-2019OPT000895

PATIENT
  Sex: Female

DRUGS (1)
  1. XHANCE [Suspect]
     Active Substance: FLUTICASONE PROPIONATE
     Indication: NASAL CONGESTION
     Route: 045

REACTIONS (8)
  - Hypoaesthesia [Not Recovered/Not Resolved]
  - Product use in unapproved indication [Unknown]
  - Device breakage [Unknown]
  - Paraesthesia [Not Recovered/Not Resolved]
  - Device leakage [Unknown]
  - Wound [Recovering/Resolving]
  - Scar [Unknown]
  - Wound haemorrhage [Unknown]
